FAERS Safety Report 21519400 (Version 1)
Quarter: 2022Q4

REPORT INFORMATION
  Report Type: Spontaneous
  Country: CA (occurrence: None)
  Receive Date: 20221028
  Receipt Date: 20221028
  Transmission Date: 20230112
  Serious: Yes (Hospitalization, Other)
  Sender: FDA-Public Use
  Company Number: 2022A353480

PATIENT
  Age: 59 Year
  Sex: Female

DRUGS (8)
  1. SAXAGLIPTIN HYDROCHLORIDE [Interacting]
     Active Substance: SAXAGLIPTIN HYDROCHLORIDE
     Indication: Product used for unknown indication
     Route: 048
  2. SAXAGLIPTIN HYDROCHLORIDE [Interacting]
     Active Substance: SAXAGLIPTIN HYDROCHLORIDE
     Indication: Product used for unknown indication
     Route: 048
  3. HUMULIN R [Interacting]
     Active Substance: INSULIN HUMAN
     Indication: Product used for unknown indication
     Route: 065
  4. JARDIANCE [Interacting]
     Active Substance: EMPAGLIFLOZIN
     Indication: Product used for unknown indication
     Route: 065
  5. JARDIANCE [Interacting]
     Active Substance: EMPAGLIFLOZIN
     Indication: Product used for unknown indication
     Route: 065
  6. GLICLAZIDE [Concomitant]
     Active Substance: GLICLAZIDE
     Indication: Product used for unknown indication
  7. GLYBURIDE [Concomitant]
     Active Substance: GLYBURIDE
     Indication: Product used for unknown indication
  8. METFORMIN [Concomitant]
     Active Substance: METFORMIN HYDROCHLORIDE
     Indication: Product used for unknown indication

REACTIONS (4)
  - Drug interaction [Unknown]
  - Arrhythmia [Unknown]
  - Ketoacidosis [Unknown]
  - Syncope [Unknown]
